FAERS Safety Report 4798628-2 (Version None)
Quarter: 2005Q4

REPORT INFORMATION
  Report Type: 
  Country: None (occurrence: None)
  Receive Date: 20051014
  Receipt Date: 20051003
  Transmission Date: 20060501
  Serious: Yes (Hospitalization)
  Sender: FDA-Public Use
  Company Number: US-MERCK-0510USA02552

PATIENT
  Age: 72 Year
  Sex: Male
  Weight: 116 kg

DRUGS (7)
  1. VIOXX [Suspect]
     Indication: ARTHRALGIA
     Route: 065
     Dates: start: 20030101, end: 20050101
  2. VIOXX [Suspect]
     Indication: MYALGIA
     Route: 065
     Dates: start: 20030101, end: 20050101
  3. SYNTHROID [Concomitant]
     Route: 065
  4. GLYBURIDE [Concomitant]
     Route: 065
  5. ACEON [Concomitant]
     Route: 065
  6. FLOMAX (MORNIFLUMATE) [Concomitant]
     Route: 065
  7. VITAMINS (UNSPECIFIED) [Concomitant]
     Route: 065

REACTIONS (3)
  - ABNORMAL SENSATION IN EYE [None]
  - CEREBROVASCULAR ACCIDENT [None]
  - EYE PAIN [None]
